FAERS Safety Report 9892371 (Version 3)
Quarter: 2014Q1

REPORT INFORMATION
  Report Type: Spontaneous
  Country: JP (occurrence: JP)
  Receive Date: 20140212
  Receipt Date: 20140314
  Transmission Date: 20141002
  Serious: Yes (Other)
  Sender: FDA-Public Use
  Company Number: JP-ELI_LILLY_AND_COMPANY-JP201402000547

PATIENT
  Age: 64 Year
  Sex: Female

DRUGS (4)
  1. FORTEO [Suspect]
     Indication: OSTEOPOROSIS
     Dosage: UNK
     Route: 058
  2. ADETPHOS [Concomitant]
     Route: 065
  3. METHYCOBAL [Concomitant]
     Route: 065
  4. ISOSORBID MONONITRATE [Concomitant]
     Route: 065

REACTIONS (4)
  - Hydronephrosis [Unknown]
  - Calculus ureteric [Recovering/Resolving]
  - Nephrolithiasis [Recovering/Resolving]
  - Blood calcium increased [Unknown]
